FAERS Safety Report 13613522 (Version 2)
Quarter: 2017Q2

REPORT INFORMATION
  Report Type: Report from Study
  Country: BR (occurrence: BR)
  Receive Date: 20170605
  Receipt Date: 20170607
  Transmission Date: 20170830
  Serious: Yes (Other)
  Sender: FDA-Public Use
  Company Number: PHHY2017BR076309

PATIENT
  Sex: Female
  Weight: 83 kg

DRUGS (2)
  1. FORASEQ [Suspect]
     Active Substance: BUDESONIDE\FORMOTEROL FUMARATE
     Dosage: 1 DF (BUDESONIDE 200 MCG AND FORMOTEROL FUMARATE 12 MCG), BID (ONE MONTH AGO)
     Route: 055
     Dates: start: 20170521
  2. FORASEQ [Suspect]
     Active Substance: BUDESONIDE\FORMOTEROL FUMARATE
     Indication: METASTASIS
     Dosage: 1 DF (BUDESONIDE 200 MCG AND FORMOTEROL FUMARATE 12 MCG), BID (ONE MONTH AGO)
     Route: 055

REACTIONS (5)
  - Intestinal haemorrhage [Unknown]
  - Haematochezia [Not Recovered/Not Resolved]
  - Swelling face [Unknown]
  - Faeces hard [Unknown]
  - Product use in unapproved indication [Unknown]
